FAERS Safety Report 8063089-7 (Version None)
Quarter: 2012Q1

REPORT INFORMATION
  Report Type: 
  Country: None (occurrence: None)
  Receive Date: 20120123
  Receipt Date: 20120116
  Transmission Date: 20120608
  Serious: Yes (Other)
  Sender: FDA-Public Use
  Company Number: BR-PFIZER INC-2012011855

PATIENT
  Age: 54 Year
  Sex: Male
  Weight: 90 kg

DRUGS (3)
  1. LEXOTAN [Suspect]
     Dosage: 80 MG, HALF OF TABLET OR ONE TABLET AS NEEDED
  2. LEXOTAN [Suspect]
     Indication: ANXIETY
     Dosage: 20 ML, 9 DROPS IN THE MORNING
     Route: 048
  3. LYRICA [Suspect]
     Dosage: UNK
     Route: 048

REACTIONS (7)
  - HAEMORRHOIDS [None]
  - NERVOUSNESS [None]
  - GASTROOESOPHAGEAL REFLUX DISEASE [None]
  - MYALGIA [None]
  - BLOOD PRESSURE INCREASED [None]
  - ANXIETY [None]
  - DRUG DEPENDENCE [None]
